FAERS Safety Report 9988372 (Version 2)
Quarter: 2014Q1

REPORT INFORMATION
  Report Type: Spontaneous
  Country: US (occurrence: US)
  Receive Date: 20140310
  Receipt Date: 20140326
  Transmission Date: 20141002
  Serious: Yes (Hospitalization)
  Sender: FDA-Public Use
  Company Number: US-BIOGENIDEC-2014BI018128

PATIENT
  Age: 58 Year
  Sex: Female
  Weight: 83 kg

DRUGS (21)
  1. AVONEX [Suspect]
     Indication: MULTIPLE SCLEROSIS
     Route: 030
     Dates: start: 19970101, end: 20130626
  2. AVONEX [Suspect]
     Indication: MULTIPLE SCLEROSIS
     Route: 030
  3. ATORVASTATIN [Concomitant]
  4. BENADRYL [Concomitant]
  5. BUPROPION XL [Concomitant]
     Indication: DEPRESSION
  6. CALCIUM [Concomitant]
  7. VITAMIN D [Concomitant]
  8. COMPAZINE [Concomitant]
  9. OXYBUTYNIN [Concomitant]
     Indication: BLADDER DISORDER
  10. COLACE [Concomitant]
  11. PANTOPRAZOLE [Concomitant]
  12. TYLENOL [Concomitant]
     Indication: PREMEDICATION
  13. ZYRTEC [Concomitant]
  14. SIMETHICONE [Concomitant]
  15. ZOFRAN ODT [Concomitant]
  16. MELATONIN [Concomitant]
  17. DEXAMETHASONE [Concomitant]
  18. ASPIRIN [Concomitant]
  19. CETIRIZINE [Concomitant]
  20. OXYCODONE [Concomitant]
  21. LOVENOX [Concomitant]
     Indication: PROPHYLAXIS

REACTIONS (3)
  - Ovarian cancer metastatic [Not Recovered/Not Resolved]
  - Small intestinal obstruction [Recovered/Resolved]
  - Large intestinal obstruction [Not Recovered/Not Resolved]
